FAERS Safety Report 15049216 (Version 1)
Quarter: 2018Q2

REPORT INFORMATION
  Report Type: Spontaneous
  Country: US (occurrence: US)
  Receive Date: 20180601
  Receipt Date: 20180601
  Transmission Date: 20180711
  Serious: Yes (Other)
  Sender: FDA-Public Use
  Company Number: None

PATIENT
  Age: 31 Year
  Sex: Male
  Weight: 86.18 kg

DRUGS (3)
  1. BUPROPION XL [Suspect]
     Active Substance: BUPROPION
     Indication: BIPOLAR DISORDER
     Route: 048
     Dates: start: 20120510, end: 20120610
  2. BUPROPION XL [Suspect]
     Active Substance: BUPROPION
     Indication: DEPRESSION
     Route: 048
     Dates: start: 20120510, end: 20120610
  3. BUPROPION XL [Suspect]
     Active Substance: BUPROPION
     Indication: DEPRESSION

REACTIONS (5)
  - Product substitution issue [None]
  - Insomnia [None]
  - Dry mouth [None]
  - Agitation [None]
  - Energy increased [None]

NARRATIVE: CASE EVENT DATE: 20120510
